FAERS Safety Report 7419629-1 (Version None)
Quarter: 2011Q2

REPORT INFORMATION
  Report Type: 
  Country: None (occurrence: None)
  Receive Date: 20110418
  Receipt Date: 20110407
  Transmission Date: 20111010
  Serious: Yes (Hospitalization)
  Sender: FDA-Public Use
  Company Number: FR-US-EMD SERONO, INC.-7048375

PATIENT
  Sex: Female
  Weight: 76 kg

DRUGS (8)
  1. REBIF [Suspect]
     Indication: RELAPSING-REMITTING MULTIPLE SCLEROSIS
     Route: 058
     Dates: start: 20100920, end: 20101004
  2. REBIF [Suspect]
     Route: 058
     Dates: start: 20101020, end: 20101020
  3. SOLU-MEDROL [Suspect]
     Route: 042
     Dates: start: 20100916, end: 20100921
  4. SOLU-MEDROL [Suspect]
     Route: 042
     Dates: start: 20110120, end: 20110120
  5. SOLU-MEDROL [Suspect]
     Route: 042
     Dates: start: 20101220, end: 20101220
  6. REBIF [Suspect]
     Route: 058
     Dates: start: 20101006, end: 20101018
  7. SOLU-MEDROL [Suspect]
     Indication: MULTIPLE SCLEROSIS
     Route: 042
     Dates: start: 20100816, end: 20100819
  8. SOLU-MEDROL [Suspect]
     Route: 042
     Dates: start: 20101021, end: 20101021

REACTIONS (1)
  - CYTOLYTIC HEPATITIS [None]
